FAERS Safety Report 7033381-3 (Version None)
Quarter: 2010Q4

REPORT INFORMATION
  Report Type: 
  Country: None (occurrence: None)
  Receive Date: 20101007
  Receipt Date: 20100929
  Transmission Date: 20110411
  Serious: Yes (Hospitalization)
  Sender: FDA-Public Use
  Company Number: US-WYE-H14675810

PATIENT
  Age: 67 Year
  Sex: Female
  Weight: 65 kg

DRUGS (18)
  1. TORISEL [Suspect]
     Indication: SMALL INTESTINE CARCINOMA
     Dosage: 25 MG ON DAYS 1, 8, 15 AND 22 EVERY 28 DAYS; 40 MG ADMINISTERED THIS COURSE
     Route: 042
     Dates: start: 20100127, end: 20100407
  2. COUMADIN [Concomitant]
     Indication: DEEP VEIN THROMBOSIS
     Dosage: UNKNOWN
     Route: 065
  3. COUMADIN [Concomitant]
     Indication: THROMBOSIS MESENTERIC VESSEL
     Dosage: UNKNOWN
     Route: 065
     Dates: start: 20100201, end: 20100616
  4. CALCIUM [Concomitant]
  5. CENTRUM [Concomitant]
  6. DEXAMETHASONE [Concomitant]
  7. DICYCLOVERINE HYDROCHLORIDE [Concomitant]
  8. FENTANYL [Concomitant]
  9. PREDNISONE [Concomitant]
  10. PROTONIX [Concomitant]
  11. TYLENOL [Concomitant]
  12. ASCORBIC ACID [Concomitant]
  13. VITAMIN E [Concomitant]
  14. OCTREOTIDE ACETATE [Concomitant]
  15. HYDROCHLOROTHIAZIDE [Concomitant]
  16. LISINOPRIL [Concomitant]
  17. CELEXA [Concomitant]
  18. BEVACIZUMAB [Suspect]
     Indication: SMALL INTESTINE CARCINOMA
     Dosage: 10 MG/KG OVER 30 - 90 MINUTES ON DAYS 1 AND 15
     Route: 042
     Dates: start: 20100127, end: 20100127

REACTIONS (10)
  - DEEP VEIN THROMBOSIS [None]
  - DUODENAL VARICES [None]
  - GASTRIC HAEMORRHAGE [None]
  - GASTROINTESTINAL TELANGIECTASIA [None]
  - HAEMOGLOBIN DECREASED [None]
  - INTERNATIONAL NORMALISED RATIO INCREASED [None]
  - MUCOSAL DRYNESS [None]
  - RECTAL HAEMORRHAGE [None]
  - SMALL INTESTINAL HAEMORRHAGE [None]
  - TACHYCARDIA [None]
